FAERS Safety Report 6917993-0 (Version None)
Quarter: 2010Q3

REPORT INFORMATION
  Report Type: 
  Country: None (occurrence: None)
  Receive Date: 20100810
  Receipt Date: 20091027
  Transmission Date: 20110219
  Serious: Yes (Hospitalization, Other)
  Sender: FDA-Public Use
  Company Number: US-PFIZER INC-2009273185

PATIENT
  Sex: Male
  Weight: 77.098 kg

DRUGS (2)
  1. TOVIAZ [Suspect]
     Indication: POSTOPERATIVE CARE
     Dosage: 4 MG, 1X/DAY
     Route: 048
     Dates: start: 20090911, end: 20090912
  2. TOVIAZ [Suspect]
     Indication: BLADDER SPASM

REACTIONS (1)
  - URINARY RETENTION POSTOPERATIVE [None]
